FAERS Safety Report 22326335 (Version 1)
Quarter: 2023Q2

REPORT INFORMATION
  Report Type: Spontaneous
  Country: US (occurrence: US)
  Receive Date: 20230516
  Receipt Date: 20230516
  Transmission Date: 20230722
  Serious: No
  Sender: FDA-Public Use
  Company Number: US-RADIUS HEALTH INC.-2022US003821

PATIENT
  Sex: Female

DRUGS (2)
  1. TYMLOS [Suspect]
     Active Substance: ABALOPARATIDE
     Indication: Osteoporosis
     Dosage: 80 MCG, DAILY
     Dates: start: 202207
  2. Fish pills [Concomitant]
     Indication: Product used for unknown indication

REACTIONS (5)
  - Pain in jaw [Not Recovered/Not Resolved]
  - Oral pain [Not Recovered/Not Resolved]
  - Injection site bruising [Recovering/Resolving]
  - Arthralgia [Not Recovered/Not Resolved]
  - Product quality issue [Unknown]

NARRATIVE: CASE EVENT DATE: 20220701
